FAERS Safety Report 7425039-3 (Version None)
Quarter: 2011Q2

REPORT INFORMATION
  Report Type: 
  Country: None (occurrence: None)
  Receive Date: 20110420
  Receipt Date: 20110411
  Transmission Date: 20111010
  Serious: Yes (Other)
  Sender: FDA-Public Use
  Company Number: GB-AMGEN-GBRSP2011019759

PATIENT
  Age: 49 Year
  Sex: Female

DRUGS (8)
  1. METFORMIN HCL [Concomitant]
     Dosage: UNK
  2. MEBEVERINE [Concomitant]
     Dosage: UNK
  3. OMEPRAZOLE [Concomitant]
     Dosage: UNK
  4. VITAMIN A [Concomitant]
     Dosage: UNK
  5. CO-DYDRAMOL [Concomitant]
     Dosage: UNK
  6. SIMVASTATIN [Concomitant]
     Dosage: UNK
  7. ENBREL [Suspect]
     Indication: PSORIATIC ARTHROPATHY
     Dosage: 50 MG, UNK
     Route: 058
     Dates: start: 20110111, end: 20110111
  8. THYROXINE [Concomitant]
     Dosage: UNK

REACTIONS (3)
  - PHOTOPHOBIA [None]
  - HEADACHE [None]
  - VOMITING [None]
